FAERS Safety Report 12229513 (Version 1)
Quarter: 2016Q1

REPORT INFORMATION
  Report Type: Spontaneous
  Country: US (occurrence: None)
  Receive Date: 20160331
  Receipt Date: 20160331
  Transmission Date: 20160526
  Serious: Yes (Other)
  Sender: FDA-Public Use
  Company Number: None

PATIENT
  Age: 44 Year
  Sex: Female
  Weight: 56.25 kg

DRUGS (1)
  1. CEFDINDIR 300 MG [Suspect]
     Active Substance: CEFDINIR
     Indication: PHARYNGITIS STREPTOCOCCAL
     Route: 048
     Dates: end: 20160323

REACTIONS (5)
  - Dry mouth [None]
  - Thirst [None]
  - Lip dry [None]
  - Lip swelling [None]
  - Lip exfoliation [None]

NARRATIVE: CASE EVENT DATE: 20160325
